FAERS Safety Report 23240674 (Version 1)
Quarter: 2023Q4

REPORT INFORMATION
  Report Type: Other
  Country: None (occurrence: TR)
  Receive Date: 20231129
  Receipt Date: 20231129
  Transmission Date: 20240110
  Serious: Yes (Other)
  Sender: FDA-Public Use
  Company Number: TR-B.Braun Medical Inc.-2148781

PATIENT
  Age: 66 Year
  Sex: Female

DRUGS (3)
  1. BUPIVACAINE HYDROCHLORIDE WITH DEXTROSE [Suspect]
     Active Substance: BUPIVACAINE HYDROCHLORIDE
     Indication: Lymphoedema
  2. BETAMETHASONE [Suspect]
     Active Substance: BETAMETHASONE\BETAMETHASONE DIPROPIONATE
  3. Complex decongestive therapy [Concomitant]

REACTIONS (3)
  - Osteoporotic fracture [None]
  - Lumbar vertebral fracture [None]
  - Off label use [None]
